FAERS Safety Report 11774000 (Version 2)
Quarter: 2015Q4

REPORT INFORMATION
  Report Type: Report from Study
  Country: US (occurrence: US)
  Receive Date: 20151124
  Receipt Date: 20151208
  Transmission Date: 20160304
  Serious: Yes (Other)
  Sender: FDA-Public Use
  Company Number: US-GILEAD-2015-0183199

PATIENT
  Age: 78 Year
  Sex: Male

DRUGS (1)
  1. IDELALISIB [Suspect]
     Active Substance: IDELALISIB
     Indication: CHRONIC LYMPHOCYTIC LEUKAEMIA
     Dosage: 150 MG, BID
     Route: 048
     Dates: start: 20151029

REACTIONS (10)
  - Nocturia [Unknown]
  - Urinary tract infection [Unknown]
  - Chills [Unknown]
  - Heart rate increased [Unknown]
  - Laboratory test abnormal [Unknown]
  - Tremor [Unknown]
  - Feeling cold [Unknown]
  - Pyrexia [Unknown]
  - Diabetes mellitus [Unknown]
  - Hypoaesthesia [Unknown]

NARRATIVE: CASE EVENT DATE: 2015
